FAERS Safety Report 7220923-8 (Version None)
Quarter: 2011Q1

REPORT INFORMATION
  Report Type: 
  Country: None (occurrence: None)
  Receive Date: 20110112
  Receipt Date: 20101207
  Transmission Date: 20110831
  Serious: No
  Sender: FDA-Public Use
  Company Number: A0898389A

PATIENT
  Age: 82 Year
  Sex: Male

DRUGS (15)
  1. TEMAZEPAM [Concomitant]
  2. PROPYLENE GLYCOL [Concomitant]
  3. MULTI-VITAMIN [Concomitant]
  4. ASPIRIN [Concomitant]
  5. DIETARY SUPPLEMENT [Concomitant]
  6. METOPROLOL [Concomitant]
  7. AVALIDE [Concomitant]
  8. GABAPENTIN [Concomitant]
  9. ACIDOPHILUS [Concomitant]
  10. NITROGLYCERIN [Concomitant]
  11. JALYN [Suspect]
     Dosage: .5MG PER DAY
     Route: 048
     Dates: start: 20101026
  12. DARVOCET [Concomitant]
  13. TOVIAZ [Concomitant]
  14. LOVAZA [Concomitant]
  15. ACIPHEX [Concomitant]

REACTIONS (2)
  - DIZZINESS [None]
  - DRUG INEFFECTIVE [None]
